FAERS Safety Report 5007382-0 (Version None)
Quarter: 2006Q2

REPORT INFORMATION
  Report Type: 
  Country: None (occurrence: None)
  Receive Date: 20060518
  Receipt Date: 20060518
  Transmission Date: 20061013
  Serious: Yes (Hospitalization)
  Sender: FDA-Public Use
  Company Number: None

PATIENT
  Sex: Male

DRUGS (8)
  1. ASPIRIN [Suspect]
     Indication: PROPHYLAXIS
     Dosage: 81 MG DAILY PO
     Route: 048
  2. PYRIDOXINE HCL [Concomitant]
  3. HYDROCHLOROTHIAZIDE [Concomitant]
  4. LEVETIRACETAM [Concomitant]
  5. LISINOPRIL [Concomitant]
  6. CYANOCOBALAMIN [Concomitant]
  7. DOCUSATE [Concomitant]
  8. DONEPEZIL HCL [Concomitant]

REACTIONS (2)
  - FAECES DISCOLOURED [None]
  - HAEMATEMESIS [None]
